FAERS Safety Report 4392427-1 (Version None)
Quarter: 2004Q3

REPORT INFORMATION
  Report Type: 
  Country: None (occurrence: None)
  Receive Date: 20040702
  Receipt Date: 20040326
  Transmission Date: 20050211
  Serious: Yes (Other)
  Sender: FDA-Public Use
  Company Number: 2004UW06034

PATIENT
  Age: 67 Year
  Sex: Female
  Weight: 89.3586 kg

DRUGS (4)
  1. CRESTOR [Suspect]
     Indication: HYPERCHOLESTEROLAEMIA
     Dosage: 10 MG QD PO
     Route: 048
  2. ASPIRIN [Concomitant]
  3. MULTIVITAMIN [Concomitant]
  4. CALCIUM [Concomitant]

REACTIONS (3)
  - HEADACHE [None]
  - HYPOAESTHESIA ORAL [None]
  - MUSCLE TWITCHING [None]
